FAERS Safety Report 7110597-9 (Version None)
Quarter: 2010Q4

REPORT INFORMATION
  Report Type: 
  Country: None (occurrence: None)
  Receive Date: 20101118
  Receipt Date: 20101109
  Transmission Date: 20110411
  Serious: Yes (Disabling)
  Sender: FDA-Public Use
  Company Number: CH-ROCHE-740332

PATIENT
  Age: 69 Year
  Sex: Female
  Weight: 52 kg

DRUGS (3)
  1. XELODA [Suspect]
     Route: 041
     Dates: end: 20100915
  2. NAVELBINE [Suspect]
     Route: 041
     Dates: end: 20100915
  3. ZOMETA [Suspect]
     Route: 041
     Dates: start: 20091101

REACTIONS (2)
  - OSTEONECROSIS [None]
  - TOOTH DISORDER [None]
